FAERS Safety Report 11831628 (Version 1)
Quarter: 2015Q4

REPORT INFORMATION
  Report Type: Spontaneous
  Country: US (occurrence: US)
  Receive Date: 20151214
  Receipt Date: 20151214
  Transmission Date: 20160305
  Serious: No
  Sender: FDA-Public Use
  Company Number: US-009507513-1512USA006866

PATIENT
  Sex: Female

DRUGS (1)
  1. NEXPLANON [Suspect]
     Active Substance: ETONOGESTREL
     Indication: CONTRACEPTION
     Dosage: UNK
     Route: 059

REACTIONS (10)
  - Viral infection [Unknown]
  - Menorrhagia [Unknown]
  - Abdominal pain upper [Unknown]
  - Mood swings [Unknown]
  - Headache [Unknown]
  - Weight increased [Unknown]
  - Dysmenorrhoea [Unknown]
  - Back pain [Unknown]
  - Nausea [Unknown]
  - Dizziness [Unknown]
